FAERS Safety Report 7308210-0 (Version None)
Quarter: 2011Q1

REPORT INFORMATION
  Report Type: 
  Country: None (occurrence: None)
  Receive Date: 20110211
  Receipt Date: 20110131
  Transmission Date: 20110831
  Serious: Yes (Other)
  Sender: FDA-Public Use
  Company Number: 2011SP004997

PATIENT
  Sex: Female

DRUGS (2)
  1. CERAZETTE (DESOGESTREL /00754001/) [Suspect]
     Indication: PRODUCT USED FOR UNKNOWN INDICATION
  2. TEGRETOL [Suspect]
     Indication: PRODUCT USED FOR UNKNOWN INDICATION

REACTIONS (1)
  - HYPERTENSION [None]
